FAERS Safety Report 11082293 (Version 2)
Quarter: 2015Q2

REPORT INFORMATION
  Report Type: Spontaneous
  Country: US (occurrence: US)
  Receive Date: 20150501
  Receipt Date: 20150508
  Transmission Date: 20150821
  Serious: No
  Sender: FDA-Public Use
  Company Number: US-PFIZER INC-2015142191

PATIENT
  Age: 52 Year
  Sex: Male
  Weight: 95 kg

DRUGS (1)
  1. LYRICA [Suspect]
     Active Substance: PREGABALIN
     Dosage: 75 MG, 2 OR 3 X/ DAY

REACTIONS (1)
  - Peripheral swelling [Unknown]
